FAERS Safety Report 21646777 (Version 1)
Quarter: 2022Q4

REPORT INFORMATION
  Report Type: Spontaneous
  Country: FR (occurrence: FR)
  Receive Date: 20221127
  Receipt Date: 20221127
  Transmission Date: 20230113
  Serious: Yes (Other)
  Sender: FDA-Public Use
  Company Number: None

PATIENT
  Age: 74 Year
  Sex: Male
  Weight: 92 kg

DRUGS (3)
  1. ATENOLOL [Interacting]
     Active Substance: ATENOLOL
     Indication: Product used for unknown indication
     Dosage: 25 MILLIGRAM DAILY; 1 TABLET IN THE MORNING, DURATION 1 DAY
     Dates: start: 20221018, end: 20221019
  2. ATENOLOL [Interacting]
     Active Substance: ATENOLOL
     Dosage: 12.5 MILLIGRAM DAILY; 1 TABLET IN THE MORNING, DURATION 1 DAY
     Dates: start: 20221020, end: 20221020
  3. PAXLOVID [Interacting]
     Active Substance: NIRMATRELVIR\RITONAVIR
     Indication: COVID-19
     Dosage: {2+1} MORNING AND EVENING, FORM STRENGTH: 150 MG + 100 MG, DURATION 5 DAYS, 3 DF
     Dates: start: 20221017, end: 20221022

REACTIONS (5)
  - Asthenia [Recovering/Resolving]
  - Palpitations [Recovering/Resolving]
  - Hypotension [Recovering/Resolving]
  - Bradycardia [Recovering/Resolving]
  - Drug interaction [Unknown]

NARRATIVE: CASE EVENT DATE: 20221019
